FAERS Safety Report 21580429 (Version 1)
Quarter: 2022Q4

REPORT INFORMATION
  Report Type: Spontaneous
  Country: BR (occurrence: BR)
  Receive Date: 20221110
  Receipt Date: 20221110
  Transmission Date: 20230113
  Serious: Yes (Hospitalization, Other)
  Sender: FDA-Public Use
  Company Number: None

PATIENT
  Age: 75 Year
  Sex: Female
  Weight: 51 kg

DRUGS (7)
  1. KEYTRUDA [Suspect]
     Active Substance: PEMBROLIZUMAB
     Dosage: 400 MG QD
     Route: 042
     Dates: start: 20220323, end: 20220323
  2. CARBOPLATIN [Suspect]
     Active Substance: CARBOPLATIN
     Dosage: UNK
     Dates: start: 20220308, end: 20220308
  3. CARBOPLATIN [Suspect]
     Active Substance: CARBOPLATIN
     Dosage: UNK
     Dates: start: 20220316, end: 20220316
  4. CARBOPLATIN [Suspect]
     Active Substance: CARBOPLATIN
     Dosage: 138 MILLIGRAM, QD
     Route: 042
     Dates: start: 20220323, end: 20220323
  5. PACLITAXEL [Concomitant]
     Active Substance: PACLITAXEL
     Dosage: UNK
     Dates: start: 20220308, end: 20220308
  6. PACLITAXEL [Concomitant]
     Active Substance: PACLITAXEL
     Dosage: UNK
     Dates: start: 20220316, end: 20220316
  7. PACLITAXEL [Concomitant]
     Active Substance: PACLITAXEL
     Dosage: UNK
     Dates: start: 20220323, end: 20220323

REACTIONS (2)
  - Thrombocytopenia [Recovered/Resolved]
  - Product use issue [Unknown]

NARRATIVE: CASE EVENT DATE: 20220323
